FAERS Safety Report 9321941 (Version 1)
Quarter: 2013Q2

REPORT INFORMATION
  Report Type: Spontaneous
  Country: FR (occurrence: FR)
  Receive Date: 20130531
  Receipt Date: 20130531
  Transmission Date: 20140414
  Serious: Yes (Hospitalization)
  Sender: FDA-Public Use
  Company Number: FR-JNJFOC-20130520686

PATIENT
  Age: 29 Year
  Sex: Female
  Weight: 55 kg

DRUGS (16)
  1. CETIRIZINE HYDROCHLORIDE [Suspect]
     Route: 048
  2. CETIRIZINE HYDROCHLORIDE [Suspect]
     Indication: PRODUCT USED FOR UNKNOWN INDICATION
     Route: 048
     Dates: start: 20130214, end: 20130219
  3. FLUCONAZOLE [Suspect]
     Indication: PRODUCT USED FOR UNKNOWN INDICATION
     Route: 048
     Dates: start: 20130214, end: 20130214
  4. ATARAX [Suspect]
     Indication: PRODUCT USED FOR UNKNOWN INDICATION
     Route: 048
     Dates: start: 2013, end: 20130308
  5. ATARAX [Suspect]
     Indication: PRODUCT USED FOR UNKNOWN INDICATION
     Route: 048
     Dates: start: 20130219, end: 2013
  6. ECONAZOLE [Suspect]
     Indication: PRURITUS
     Route: 067
     Dates: start: 20130211, end: 20130211
  7. ECONAZOLE [Suspect]
     Indication: PRURITUS
     Route: 067
     Dates: start: 20130211, end: 20130211
  8. FUCIDIN [Concomitant]
     Dates: start: 20130219, end: 20130225
  9. DAFALGAN [Concomitant]
     Dates: start: 20130223, end: 20130225
  10. DEXAMETHASONE W/NEOMYCIN/POLYMYXIN B [Concomitant]
     Route: 001
     Dates: start: 20130223, end: 20130225
  11. AERIUS [Concomitant]
     Dates: start: 20130226, end: 20130308
  12. DIPROSONE [Concomitant]
     Dates: start: 20130226, end: 20130305
  13. BETNEVAL [Concomitant]
     Dates: start: 20130214, end: 20130219
  14. DEXCHLORPHENIRAMINE MALEATE [Concomitant]
     Dosage: 2 MG TO 4 MG
     Route: 048
     Dates: start: 20130214, end: 20130219
  15. MINESSE [Concomitant]
     Dates: start: 2011
  16. DEXERYL [Concomitant]
     Dates: start: 20130214, end: 20130219

REACTIONS (3)
  - Toxic skin eruption [Unknown]
  - Eosinophilia [Unknown]
  - Pruritus [Unknown]
